FAERS Safety Report 6127468-7 (Version None)
Quarter: 2009Q1

REPORT INFORMATION
  Report Type: 
  Country: None (occurrence: None)
  Receive Date: 20090323
  Receipt Date: 20090317
  Transmission Date: 20090719
  Serious: Yes (Other)
  Sender: FDA-Public Use
  Company Number: US-ASTRAZENECA-2009UW02190

PATIENT
  Age: 25010 Day
  Sex: Female
  Weight: 81.6 kg

DRUGS (4)
  1. ARIMIDEX [Suspect]
     Dosage: UNKNOWN
     Route: 048
  2. SYNTHROID [Concomitant]
  3. DIOVAN [Concomitant]
  4. SINEMET [Concomitant]

REACTIONS (1)
  - PEMPHIGOID [None]
